FAERS Safety Report 12061360 (Version 1)
Quarter: 2016Q1

REPORT INFORMATION
  Report Type: Spontaneous
  Country: US (occurrence: US)
  Receive Date: 20160210
  Receipt Date: 20160210
  Transmission Date: 20160526
  Serious: No
  Sender: FDA-Public Use
  Company Number: US-ALLERGAN-1503134US

PATIENT
  Sex: Female

DRUGS (2)
  1. BOTOX COSMETIC [Suspect]
     Active Substance: ONABOTULINUMTOXINA
     Indication: SKIN WRINKLING
     Dosage: UNK, SINGLE
     Dates: start: 201501, end: 201501
  2. BOTOX COSMETIC [Suspect]
     Active Substance: ONABOTULINUMTOXINA
     Indication: SKIN WRINKLING

REACTIONS (5)
  - Erythema [Unknown]
  - Injection site reaction [Not Recovered/Not Resolved]
  - Facial asymmetry [Not Recovered/Not Resolved]
  - Skin tightness [Not Recovered/Not Resolved]
  - Facial paresis [Not Recovered/Not Resolved]
